FAERS Safety Report 24791330 (Version 1)
Quarter: 2024Q4

REPORT INFORMATION
  Report Type: Report from Study
  Country: US (occurrence: US)
  Receive Date: 20241231
  Receipt Date: 20241231
  Transmission Date: 20250115
  Serious: Yes (Other)
  Sender: ABBVIE
  Company Number: US-ABBVIE-6062756

PATIENT
  Age: 41 Year
  Sex: Female

DRUGS (1)
  1. SKYRIZI [Suspect]
     Active Substance: RISANKIZUMAB-RZAA
     Indication: Product used for unknown indication
     Route: 042
     Dates: start: 20241114

REACTIONS (10)
  - Haemorrhoids [Unknown]
  - Discomfort [Unknown]
  - Pain [Unknown]
  - Disease risk factor [Unknown]
  - Fistula repair [Unknown]
  - Shock [Unknown]
  - Asthenia [Unknown]
  - Illness [Unknown]
  - Immunodeficiency [Unknown]
  - Inflammation [Unknown]

NARRATIVE: CASE EVENT DATE: 20240101
